FAERS Safety Report 16195880 (Version 1)
Quarter: 2019Q2

REPORT INFORMATION
  Report Type: Spontaneous
  Country: US (occurrence: US)
  Receive Date: 20190415
  Receipt Date: 20190415
  Transmission Date: 20190711
  Serious: Yes (Other)
  Sender: FDA-Public Use
  Company Number: US-AMGEN-USASP2019056370

PATIENT
  Age: 63 Year
  Sex: Female

DRUGS (3)
  1. PROLIA [Suspect]
     Active Substance: DENOSUMAB
     Indication: OSTEOPOROSIS
     Dosage: 60 MILLIGRAM, Q6MO
     Route: 065
  2. CITRACAL + D [CALCIUM CITRATE;COLECALCIFEROL] [Concomitant]
     Active Substance: CALCIUM CITRATE\CHOLECALCIFEROL
     Dosage: 1200 (ALSO HAD 400 OF VITAMIN D), UNK
  3. VITAMIN D [COLECALCIFEROL] [Concomitant]
     Active Substance: CHOLECALCIFEROL
     Dosage: 5000 UNK, QD

REACTIONS (11)
  - Depression [Unknown]
  - Fibula fracture [Recovered/Resolved]
  - Ligament rupture [Unknown]
  - Fatigue [Unknown]
  - Tendon rupture [Unknown]
  - Mood altered [Unknown]
  - Tendon disorder [Unknown]
  - Impaired healing [Unknown]
  - Muscle spasms [Not Recovered/Not Resolved]
  - Plantar fasciitis [Unknown]
  - Muscle atrophy [Unknown]

NARRATIVE: CASE EVENT DATE: 2018
